FAERS Safety Report 6362259-3 (Version None)
Quarter: 2009Q3

REPORT INFORMATION
  Report Type: 
  Country: None (occurrence: None)
  Receive Date: 20090918
  Receipt Date: 20090721
  Transmission Date: 20100115
  Serious: No
  Sender: FDA-Public Use
  Company Number: US-ABBOTT-09P-163-0587206-00

PATIENT
  Sex: Female
  Weight: 78.088 kg

DRUGS (16)
  1. HUMIRA [Suspect]
     Indication: CROHN'S DISEASE
     Dosage: 7 LOADING DOSES
     Dates: start: 20090601, end: 20090722
  2. PENTASA [Concomitant]
     Indication: DRUG USE FOR UNKNOWN INDICATION
  3. PREVACID [Concomitant]
     Indication: DRUG USE FOR UNKNOWN INDICATION
  4. CHOLESTYRAMINE [Concomitant]
     Indication: DRUG USE FOR UNKNOWN INDICATION
  5. GABAPENTIN [Concomitant]
     Indication: DRUG USE FOR UNKNOWN INDICATION
  6. ESFORGE [Concomitant]
     Indication: DRUG USE FOR UNKNOWN INDICATION
     Dosage: 5/320
  7. ATENOLOL [Concomitant]
     Indication: DRUG USE FOR UNKNOWN INDICATION
  8. LOVAGL [Concomitant]
     Indication: DRUG USE FOR UNKNOWN INDICATION
  9. IMODIUM [Concomitant]
     Indication: DRUG USE FOR UNKNOWN INDICATION
  10. FERROUS SULFATE TAB [Concomitant]
     Indication: DRUG USE FOR UNKNOWN INDICATION
  11. FOLIC ACID [Concomitant]
     Indication: DRUG USE FOR UNKNOWN INDICATION
  12. M.V.I. [Concomitant]
     Indication: DRUG USE FOR UNKNOWN INDICATION
  13. CALTRATE D [Concomitant]
     Indication: DRUG USE FOR UNKNOWN INDICATION
  14. VIT C [Concomitant]
     Indication: DRUG USE FOR UNKNOWN INDICATION
  15. ASPIRIN [Concomitant]
     Indication: DRUG USE FOR UNKNOWN INDICATION
  16. EVISTA [Concomitant]
     Indication: DRUG USE FOR UNKNOWN INDICATION

REACTIONS (2)
  - RASH [None]
  - SKIN ULCER [None]
